FAERS Safety Report 7804588-X (Version None)
Quarter: 2011Q4

REPORT INFORMATION
  Report Type: 
  Country: None (occurrence: None)
  Receive Date: 20111010
  Receipt Date: 20110930
  Transmission Date: 20120403
  Serious: Yes (Hospitalization)
  Sender: FDA-Public Use
  Company Number: FR-AMGEN-UK324674

PATIENT
  Age: 79 Year
  Sex: Female

DRUGS (3)
  1. CINACALCET HYDROCHLORIDE [Suspect]
     Indication: HYPERPARATHYROIDISM SECONDARY
     Dosage: 30 MG, UNK
     Route: 048
     Dates: start: 20081007, end: 20081108
  2. ARANESP [Concomitant]
     Indication: PRODUCT USED FOR UNKNOWN INDICATION
     Dosage: UNK
     Dates: start: 20051101
  3. ARANESP [Concomitant]
     Dosage: 20 MUG, Q2WK
     Route: 042
     Dates: start: 20081118

REACTIONS (2)
  - NERVOUS SYSTEM DISORDER [None]
  - PAROXYSMAL CHOREOATHETOSIS [None]
